FAERS Safety Report 9257996 (Version 1)
Quarter: 2013Q1

REPORT INFORMATION
  Report Type: Spontaneous
  Country: US (occurrence: None)
  Receive Date: 20121212
  Receipt Date: 20121212
  Transmission Date: 20140127
  Serious: No
  Sender: FDA-Public Use
  Company Number: 1208USA007625

PATIENT
  Age: 55 Year
  Sex: Male

DRUGS (3)
  1. PEGINTRON [Suspect]
     Indication: HEPATITIS C
     Dates: start: 20120624, end: 20120903
  2. REBETOL [Suspect]
     Indication: HEPATITIS C
     Dates: start: 20120624, end: 20120903
  3. VICTRELIS [Suspect]
     Indication: HEPATITIS C
     Dates: start: 20120722, end: 20120903

REACTIONS (6)
  - Amnesia [None]
  - Headache [None]
  - Weight decreased [None]
  - Rash [None]
  - Decreased appetite [None]
  - White blood cell count decreased [None]
